FAERS Safety Report 7022826-0 (Version None)
Quarter: 2010Q3

REPORT INFORMATION
  Report Type: 
  Country: None (occurrence: None)
  Receive Date: 20100930
  Receipt Date: 20100930
  Transmission Date: 20110219
  Serious: No
  Sender: FDA-Public Use
  Company Number: B0666016A

PATIENT
  Sex: Female

DRUGS (2)
  1. KIVEXA [Suspect]
     Indication: PRODUCT USED FOR UNKNOWN INDICATION
     Dosage: 900MG PER DAY
     Route: 048
     Dates: start: 20100611
  2. LOPINAVIR/RITONAVIR [Concomitant]
     Indication: PRODUCT USED FOR UNKNOWN INDICATION
     Dosage: 3CAP TWICE PER DAY
     Route: 048
     Dates: start: 20100611

REACTIONS (2)
  - DRUG EXPOSURE DURING PREGNANCY [None]
  - NAUSEA [None]
